FAERS Safety Report 25250963 (Version 1)
Quarter: 2025Q2

REPORT INFORMATION
  Report Type: Spontaneous
  Country: FR (occurrence: FR)
  Receive Date: 20250429
  Receipt Date: 20250429
  Transmission Date: 20250717
  Serious: Yes (Other)
  Sender: FRESENIUS KABI
  Company Number: None

PATIENT
  Age: 62 Year
  Sex: Female
  Weight: 100 kg

DRUGS (1)
  1. PACLITAXEL [Suspect]
     Active Substance: PACLITAXEL
     Indication: Breast cancer metastatic
     Dosage: 150 MG/PER WEEK?FOA: 1FP
     Route: 048
     Dates: start: 20250311

REACTIONS (1)
  - Fibromyalgia [Recovering/Resolving]

NARRATIVE: CASE EVENT DATE: 20250313
